FAERS Safety Report 23522178 (Version 1)
Quarter: 2024Q1

REPORT INFORMATION
  Report Type: Spontaneous
  Country: CA (occurrence: CA)
  Receive Date: 20240214
  Receipt Date: 20240214
  Transmission Date: 20240410
  Serious: Yes (Hospitalization, Other)
  Sender: FDA-Public Use
  Company Number: CA-HLS-202400376

PATIENT
  Age: 20 Year
  Sex: Male

DRUGS (11)
  1. CLOZAPINE [Suspect]
     Active Substance: CLOZAPINE
     Indication: Schizoaffective disorder bipolar type
     Dosage: 1 EVERY 1 DAYS?AMOUNT: 100 MILLIGRAM?THERAPY DURATION: 4 DAYS
     Route: 065
  2. CLOZAPINE [Suspect]
     Active Substance: CLOZAPINE
     Indication: Schizoaffective disorder bipolar type
     Dosage: 1 EVERY 1 DAYS?AMOUNT: 12.5 MILLIGRAM?TABLETS DOSAGE FORM?THERAPY DURATION: 1 DAYS
     Route: 065
  3. CLOZAPINE [Suspect]
     Active Substance: CLOZAPINE
     Indication: Schizoaffective disorder bipolar type
     Dosage: 1 EVERY 1 DAYS?AMOUNT: 12.5 MILLIGRAM?THERAPY DURATION: 1 DAYS
     Route: 065
  4. CLOZAPINE [Suspect]
     Active Substance: CLOZAPINE
     Indication: Schizoaffective disorder bipolar type
     Dosage: 1 EVERY 1 DAYS?AMOUNT: 125 MILLIGRAM?THERAPY DURATION: 1 DAYS
     Route: 065
  5. CLOZAPINE [Suspect]
     Active Substance: CLOZAPINE
     Indication: Schizoaffective disorder bipolar type
     Dosage: 1 EVERY 1 DAYS?AMOUNT: 150 MILLIGRAM?THERAPY DURATION: 1 DAYS
     Route: 065
  6. CLOZAPINE [Suspect]
     Active Substance: CLOZAPINE
     Indication: Schizoaffective disorder bipolar type
     Dosage: 1 EVERY 1 DAYS?AMOUNT: 175 MILLIGRAM?THERAPY DURATION: 1 DAYS
     Route: 065
  7. CLOZAPINE [Suspect]
     Active Substance: CLOZAPINE
     Indication: Schizoaffective disorder bipolar type
     Dosage: 1 EVERY 1 DAYS?AMOUNT: 200 MILLIGRAM?THERAPY DURATION: 4 DAYS
     Route: 065
  8. CLOZAPINE [Suspect]
     Active Substance: CLOZAPINE
     Indication: Schizoaffective disorder bipolar type
     Dosage: 1 EVERY 1 DAYS?AMOUNT: 25 MILLIGRAM?THERAPY DURATION: 1 DAYS
     Route: 065
  9. CLOZAPINE [Suspect]
     Active Substance: CLOZAPINE
     Indication: Schizoaffective disorder bipolar type
     Dosage: 1 EVERY 1 DAYS?AMOUNT: 37.5 MILLIGRAM?THERAPY DURATION: 1 DAYS
     Route: 065
  10. CLOZAPINE [Suspect]
     Active Substance: CLOZAPINE
     Indication: Schizoaffective disorder bipolar type
     Dosage: 1 EVERY 1 DAYS?AMOUNT: 50 MILLIGRAM?THERAPY DURATION: 1 DAYS
     Route: 065
  11. CLOZAPINE [Suspect]
     Active Substance: CLOZAPINE
     Indication: Schizoaffective disorder bipolar type
     Dosage: 1 EVERY 1 DAYS?AMOUNT: 75 MILLIGRAM?THERAPY DURATION: 1 DAYS
     Route: 065

REACTIONS (2)
  - Contraindicated product administered [Recovered/Resolved]
  - Myocarditis [Recovered/Resolved]
